FAERS Safety Report 5532976-3 (Version None)
Quarter: 2007Q4

REPORT INFORMATION
  Report Type: 
  Country: None (occurrence: None)
  Receive Date: 20071129
  Receipt Date: 20071129
  Transmission Date: 20080405
  Serious: Yes (Life-Threatening, Hospitalization)
  Sender: FDA-Public Use
  Company Number: None

PATIENT
  Age: 54 Year
  Sex: Male

DRUGS (1)
  1. BYETTA [Suspect]
     Indication: DIABETES MELLITUS
     Dosage: 5 MCG BID IM; PT STOPPED FOR FEW MONTHS
     Route: 030
     Dates: start: 20061016, end: 20071108

REACTIONS (13)
  - BACTERAEMIA [None]
  - BLOOD BICARBONATE DECREASED [None]
  - BLOOD CHLORIDE DECREASED [None]
  - BLOOD CREATININE INCREASED [None]
  - BLOOD SODIUM DECREASED [None]
  - DIABETIC KETOACIDOSIS [None]
  - HIGH DENSITY LIPOPROTEIN DECREASED [None]
  - HYPERPLASTIC CHOLECYSTOPATHY [None]
  - PANCREATITIS NECROTISING [None]
  - PERICARDIAL EFFUSION [None]
  - PLEURAL EFFUSION [None]
  - PORTAL VEIN THROMBOSIS [None]
  - TREATMENT NONCOMPLIANCE [None]
